FAERS Safety Report 7080530-7 (Version None)
Quarter: 2010Q4

REPORT INFORMATION
  Report Type: 
  Country: None (occurrence: None)
  Receive Date: 20101103
  Receipt Date: 20101022
  Transmission Date: 20110411
  Serious: Yes (Hospitalization, Other)
  Sender: FDA-Public Use
  Company Number: JP-ASTRAZENECA-2010SE40359

PATIENT
  Age: 674 Month
  Sex: Female
  Weight: 43 kg

DRUGS (12)
  1. SEROQUEL [Suspect]
     Indication: SCHIZOPHRENIA
     Route: 048
  2. LIVALO [Suspect]
     Route: 048
     Dates: start: 20100619, end: 20100914
  3. WARFARIN [Concomitant]
     Route: 048
     Dates: start: 20100619
  4. LASIX [Concomitant]
     Route: 048
     Dates: start: 20100619
  5. PARIET [Concomitant]
     Route: 048
     Dates: start: 20100619
  6. MAGNESIUM OXIDE [Concomitant]
     Route: 048
  7. LIMAS [Concomitant]
     Route: 048
  8. BENZALIN [Concomitant]
     Route: 048
  9. DORAL [Concomitant]
     Route: 048
  10. TOLEDOMIN [Concomitant]
     Route: 048
  11. LAXOBERON [Concomitant]
     Route: 048
  12. TETRAMIDE [Concomitant]
     Route: 048

REACTIONS (3)
  - HEPATIC ENZYME INCREASED [None]
  - PULMONARY EMBOLISM [None]
  - RIGHT VENTRICULAR FAILURE [None]
